FAERS Safety Report 25737384 (Version 2)
Quarter: 2025Q4

REPORT INFORMATION
  Report Type: Spontaneous
  Country: US (occurrence: US)
  Receive Date: 20250828
  Receipt Date: 20251118
  Transmission Date: 20260118
  Serious: Yes (Other)
  Sender: APELLIS PHARMACEUTICALS
  Company Number: US-APELLIS PHARMACEUTICALS-APL-2023-002525

PATIENT

DRUGS (1)
  1. SYFOVRE [Suspect]
     Active Substance: PEGCETACOPLAN
     Indication: Dry age-related macular degeneration
     Dosage: UNK
     Route: 031
     Dates: start: 20230504

REACTIONS (10)
  - Visual impairment [Not Recovered/Not Resolved]
  - Retinal occlusive vasculitis [Not Recovered/Not Resolved]
  - Uveitis [Unknown]
  - Swelling of eyelid [Unknown]
  - Anterior segment neovascularisation [Unknown]
  - Pyrexia [Unknown]
  - Intraocular pressure increased [Unknown]
  - Retinal haemorrhage [Unknown]
  - Retinal artery occlusion [Unknown]
  - Optic disc oedema [Unknown]

NARRATIVE: CASE EVENT DATE: 20230101
